FAERS Safety Report 7301517-2 (Version None)
Quarter: 2011Q1

REPORT INFORMATION
  Report Type: 
  Country: None (occurrence: None)
  Receive Date: 20110218
  Receipt Date: 20100920
  Transmission Date: 20110831
  Serious: Yes (Other)
  Sender: FDA-Public Use
  Company Number: US-BRISTOL-MYERS SQUIBB COMPANY-15296601

PATIENT
  Age: 18 Year
  Sex: Female

DRUGS (1)
  1. KENALOG [Suspect]
     Dates: start: 20090919

REACTIONS (4)
  - WEIGHT DECREASED [None]
  - ATROPHY [None]
  - SKIN HYPOPIGMENTATION [None]
  - DEPRESSION [None]
